FAERS Safety Report 5793159-5 (Version None)
Quarter: 2008Q2

REPORT INFORMATION
  Report Type: 
  Country: None (occurrence: None)
  Receive Date: 20080626
  Receipt Date: 20080626
  Transmission Date: 20081010
  Serious: No
  Sender: FDA-Public Use
  Company Number: None

PATIENT
  Age: 47 Year
  Sex: Male
  Weight: 84 kg

DRUGS (1)
  1. VARENICLINE [Suspect]
     Indication: SMOKING CESSATION THERAPY
     Dosage: 1 MG BID PO
     Route: 048
     Dates: start: 20080102, end: 20080311

REACTIONS (6)
  - ALCOHOL USE [None]
  - ASOCIAL BEHAVIOUR [None]
  - ASTHENIA [None]
  - DEPRESSION [None]
  - POOR QUALITY SLEEP [None]
  - SOMNOLENCE [None]
